FAERS Safety Report 7141293-X (Version None)
Quarter: 2010Q4

REPORT INFORMATION
  Report Type: 
  Country: None (occurrence: None)
  Receive Date: 20101203
  Receipt Date: 20101203
  Transmission Date: 20110411
  Serious: Yes (Life-Threatening)
  Sender: FDA-Public Use
  Company Number: None

PATIENT
  Age: 83 Year
  Sex: Male
  Weight: 85.7298 kg

DRUGS (1)
  1. ZYPREXA [Suspect]
     Dosage: 2.5 1 TIME DAILY PO
     Route: 048
     Dates: start: 20100910, end: 20101126

REACTIONS (4)
  - AMNESIA [None]
  - CONFUSIONAL STATE [None]
  - HALLUCINATION [None]
  - SPEECH DISORDER [None]
